FAERS Safety Report 18121905 (Version 1)
Quarter: 2020Q3

REPORT INFORMATION
  Report Type: Spontaneous
  Country: CY (occurrence: CY)
  Receive Date: 20200806
  Receipt Date: 20200806
  Transmission Date: 20201103
  Serious: Yes (Other)
  Sender: FDA-Public Use
  Company Number: CY-ABBVIE-20K-041-3501596-00

PATIENT
  Sex: Male

DRUGS (2)
  1. VENCLYXTO [Suspect]
     Active Substance: VENETOCLAX
     Indication: MYELODYSPLASTIC SYNDROME
     Route: 048
  2. VENCLYXTO [Suspect]
     Active Substance: VENETOCLAX
     Indication: ACUTE MYELOID LEUKAEMIA

REACTIONS (4)
  - Platelet count decreased [Unknown]
  - Haemorrhage [Unknown]
  - Thrombocytopenia [Unknown]
  - Off label use [Unknown]
